FAERS Safety Report 6025249-6 (Version None)
Quarter: 2008Q4

REPORT INFORMATION
  Report Type: 
  Country: None (occurrence: None)
  Receive Date: 20081231
  Receipt Date: 20081222
  Transmission Date: 20090506
  Serious: Yes (Hospitalization)
  Sender: FDA-Public Use
  Company Number: US-JNJFOC-20081206003

PATIENT
  Sex: Male
  Weight: 181.44 kg

DRUGS (38)
  1. FLEXERIL [Suspect]
     Indication: DRUG USE FOR UNKNOWN INDICATION
     Route: 048
  2. ROFECOXIB [Concomitant]
     Indication: PAIN IN EXTREMITY
     Dosage: 12.5-25 MG TWICE A DAY
     Route: 048
  3. ASPIRIN [Concomitant]
  4. NORVASC [Concomitant]
  5. ZANTAC [Concomitant]
  6. TOPROL-XL [Concomitant]
  7. AVANDIA [Concomitant]
  8. GLYBURIDE [Concomitant]
  9. CARBIDOPA [Concomitant]
  10. ARTANE [Concomitant]
  11. ALLOPURINOL [Concomitant]
  12. LIPITOR [Concomitant]
  13. FLUOXETINE [Concomitant]
  14. LISINOPRIL [Concomitant]
  15. ACIPHEX [Concomitant]
  16. METOCLOPRAMIDE [Concomitant]
  17. PLAVIX [Concomitant]
  18. LASIX [Concomitant]
  19. NITROGLYCERIN [Concomitant]
  20. LESCOL [Concomitant]
  21. ALPRAZOLAM [Concomitant]
  22. REGLAN [Concomitant]
  23. IMDUR [Concomitant]
  24. ACETAMINOPHEN/PROPOPXYPHENE HCL [Concomitant]
  25. ERYTHROMYCIN [Concomitant]
  26. TEGRETOL-XR [Concomitant]
     Indication: TREMOR
  27. AMBIEN [Concomitant]
  28. ASPIRIN [Concomitant]
  29. ATROVENT [Concomitant]
  30. PREVACID [Concomitant]
  31. LOPRESSOR [Concomitant]
  32. DARVOCET-N 100 [Concomitant]
  33. OXYCODONE [Concomitant]
  34. GEMFIBROZIL [Concomitant]
  35. CARBIDOPA + LEVODOPA [Concomitant]
  36. DURAGESIC-100 [Concomitant]
  37. ZOLOFT [Concomitant]
  38. FUROSEMIDE [Concomitant]

REACTIONS (3)
  - ABNORMAL BEHAVIOUR [None]
  - SOMNOLENCE [None]
  - TRANSIENT ISCHAEMIC ATTACK [None]
